FAERS Safety Report 8518913-8 (Version None)
Quarter: 2012Q3

REPORT INFORMATION
  Report Type: 
  Country: None (occurrence: None)
  Receive Date: 20120718
  Receipt Date: 20120709
  Transmission Date: 20120928
  Serious: Yes (Hospitalization)
  Sender: FDA-Public Use
  Company Number: US-GLAXOSMITHKLINE-A0969887A

PATIENT
  Sex: Female
  Weight: 105.9 kg

DRUGS (6)
  1. ZANTAC [Concomitant]
  2. CHOLESTYRAMINE [Concomitant]
  3. XANAX [Concomitant]
  4. SYMBICORT [Concomitant]
     Dates: start: 20100719
  5. ADVAIR DISKUS 100/50 [Suspect]
     Indication: CHRONIC OBSTRUCTIVE PULMONARY DISEASE
     Dosage: 1PUFF TWICE PER DAY
     Route: 055
     Dates: start: 20030228
  6. ALBUTEROL [Concomitant]

REACTIONS (3)
  - FLUSHING [None]
  - CHRONIC OBSTRUCTIVE PULMONARY DISEASE [None]
  - ASTHMA [None]
